FAERS Safety Report 11293233 (Version 1)
Quarter: 2015Q3

REPORT INFORMATION
  Report Type: Spontaneous
  Country: US (occurrence: US)
  Receive Date: 20150722
  Receipt Date: 20150722
  Transmission Date: 20151125
  Serious: Yes (Hospitalization)
  Sender: FDA-Public Use
  Company Number: US-MYLANLABS-2015M1024126

PATIENT

DRUGS (12)
  1. OCTREOTIDE. [Concomitant]
     Active Substance: OCTREOTIDE
     Indication: PAIN
     Route: 058
  2. FENTANYL. [Suspect]
     Active Substance: FENTANYL
     Dosage: PCA 1100MCG/H, BETWEEN BASAL RATE AND BOLUS; STOPPED FOR MRI
     Route: 050
  3. METHADONE [Suspect]
     Active Substance: METHADONE HYDROCHLORIDE
     Dosage: 40 MG, QID
     Route: 065
  4. DILAUDID [Suspect]
     Active Substance: HYDROMORPHONE HYDROCHLORIDE
     Dosage: 12 MG, QH
     Route: 042
  5. DILAUDID [Suspect]
     Active Substance: HYDROMORPHONE HYDROCHLORIDE
     Dosage: 8MG, TWO DOSES; CHANGED TO 12MG EVERY HOUR
     Route: 042
  6. FENTANYL. [Suspect]
     Active Substance: FENTANYL
     Dosage: PCA TITRATED TO MAXIMUM OF 600MCG/H OVER 10D, WITH 100MCG BOLUSES EVERY 15MINS
     Route: 050
  7. METHADONE [Suspect]
     Active Substance: METHADONE HYDROCHLORIDE
     Indication: PAIN
     Dosage: 25 MG, Q6H
     Route: 042
  8. DILAUDID [Suspect]
     Active Substance: HYDROMORPHONE HYDROCHLORIDE
     Indication: PAIN
     Dosage: AS NEEDED FOR BREAKTHROUGH PAIN AND EPISODIC SEVERE RENAL COLIC
     Route: 065
  9. DILAUDID [Suspect]
     Active Substance: HYDROMORPHONE HYDROCHLORIDE
     Dosage: 48 MG, QH
     Route: 065
  10. FENTANYL. [Suspect]
     Active Substance: FENTANYL
     Indication: PAIN
     Dosage: PCA 200MCG CONTINUOUS INFUSION; 60MCG EVERY 6MINS
     Route: 050
  11. METHADONE [Suspect]
     Active Substance: METHADONE HYDROCHLORIDE
     Dosage: 50 MG, QID
     Route: 042
  12. OXYMORPHONE [Suspect]
     Active Substance: OXYMORPHONE
     Indication: PAIN
     Dosage: AS NEEDED FOR BREAKTHROUGH PAIN OVER 24H
     Route: 042

REACTIONS (1)
  - Hyperaesthesia [Recovered/Resolved]
